FAERS Safety Report 7874560-2 (Version None)
Quarter: 2011Q4

REPORT INFORMATION
  Report Type: 
  Country: None (occurrence: None)
  Receive Date: 20111031
  Receipt Date: 20111025
  Transmission Date: 20120403
  Serious: Yes (Other)
  Sender: FDA-Public Use
  Company Number: US-TEVA-307003USA

PATIENT
  Sex: Female

DRUGS (2)
  1. AMPHETAMINE AND DEXTROAMPHETAMINE SALTS [Suspect]
     Indication: NARCOLEPSY
  2. AMPHETAMINE AND DEXTROAMPHETAMINE SALTS [Suspect]
     Indication: ATTENTION DEFICIT/HYPERACTIVITY DISORDER

REACTIONS (4)
  - COUGH [None]
  - DRUG INEFFECTIVE [None]
  - RESPIRATORY TRACT CONGESTION [None]
  - CARDIAC FAILURE CONGESTIVE [None]
